FAERS Safety Report 9271729 (Version 2)
Quarter: 2013Q2

REPORT INFORMATION
  Report Type: Spontaneous
  Country: DE (occurrence: DE)
  Receive Date: 20130506
  Receipt Date: 20130524
  Transmission Date: 20140414
  Serious: Yes (Other)
  Sender: FDA-Public Use
  Company Number: DE-PFIZER INC-2013137918

PATIENT
  Age: 68 Year
  Sex: Female

DRUGS (1)
  1. LYRICA [Suspect]
     Indication: MYELODYSPLASTIC SYNDROME
     Dosage: 100 MG, 2X/DAY
     Dates: start: 2013

REACTIONS (10)
  - Impaired driving ability [Unknown]
  - Visual impairment [Unknown]
  - Visual brightness [Unknown]
  - Ear discomfort [Unknown]
  - Anxiety [Unknown]
  - Abdominal pain upper [Unknown]
  - Headache [Unknown]
  - Dizziness [Unknown]
  - Decreased appetite [Unknown]
  - Off label use [Unknown]
